FAERS Safety Report 25896118 (Version 2)
Quarter: 2025Q4

REPORT INFORMATION
  Report Type: Report from Study
  Country: KR (occurrence: KR)
  Receive Date: 20251008
  Receipt Date: 20251024
  Transmission Date: 20260118
  Serious: Yes (Other)
  Sender: TAKEDA
  Company Number: KR-TAKEDA-2025TUS087347

PATIENT
  Age: 71 Year
  Sex: Female
  Weight: 53 kg

DRUGS (5)
  1. VEDOLIZUMAB [Suspect]
     Active Substance: VEDOLIZUMAB
     Indication: Colitis ulcerative
     Dosage: 180 MILLIGRAM
  2. VEDOLIZUMAB [Suspect]
     Active Substance: VEDOLIZUMAB
  3. OLMESARTAN MEDOXOMIL [Concomitant]
     Active Substance: OLMESARTAN MEDOXOMIL
     Indication: Hypertension
     Dosage: UNK UNK, QD
     Dates: start: 20221116, end: 20240731
  4. Dukarb [Concomitant]
     Indication: Hypertension
     Dosage: UNK UNK, QD
     Dates: start: 20240819
  5. MESALAMINE [Concomitant]
     Active Substance: MESALAMINE
     Indication: Colitis ulcerative
     Dosage: UNK UNK, QD
     Dates: start: 20170424

REACTIONS (1)
  - Arteriosclerosis coronary artery [Recovering/Resolving]

NARRATIVE: CASE EVENT DATE: 20240819
